FAERS Safety Report 24812527 (Version 1)
Quarter: 2025Q1

REPORT INFORMATION
  Report Type: Spontaneous
  Country: US (occurrence: US)
  Receive Date: 20250106
  Receipt Date: 20250106
  Transmission Date: 20250409
  Serious: Yes (Other)
  Sender: AMGEN
  Company Number: US-AMGEN-USASP2024256298

PATIENT
  Age: 53 Year
  Sex: Male

DRUGS (5)
  1. PREDNISONE [Suspect]
     Active Substance: PREDNISONE
     Indication: Cholangitis sclerosing
     Route: 065
  2. PREDNISONE [Suspect]
     Active Substance: PREDNISONE
     Route: 065
  3. RITUXIMAB [Suspect]
     Active Substance: RITUXIMAB
     Indication: Cholangitis sclerosing
     Dosage: 375 MILLIGRAM/SQ. METER, Q3MO
     Route: 065
  4. RITUXIMAB [Suspect]
     Active Substance: RITUXIMAB
     Dosage: 375 MILLIGRAM/SQ. METER, QMO
     Route: 065
  5. AZATHIOPRINE [Concomitant]
     Active Substance: AZATHIOPRINE

REACTIONS (9)
  - Central serous chorioretinopathy [Unknown]
  - Autoimmune pancreatitis [Unknown]
  - Pancreatic failure [Unknown]
  - Cholangitis sclerosing [Unknown]
  - Lacrimal gland enlargement [Unknown]
  - Chronic kidney disease [Unknown]
  - Haemangioma of skin [Unknown]
  - Infusion related reaction [Unknown]
  - Off label use [Unknown]
